FAERS Safety Report 22079059 (Version 1)
Quarter: 2023Q1

REPORT INFORMATION
  Report Type: Spontaneous
  Country: US (occurrence: None)
  Receive Date: 20230309
  Receipt Date: 20230309
  Transmission Date: 20230418
  Serious: Yes (Disabling, Other)
  Sender: FDA-Public Use
  Company Number: None

PATIENT
  Age: 57 Year
  Sex: Female
  Weight: 51.75 kg

DRUGS (3)
  1. ATORVASTATIN [Suspect]
     Active Substance: ATORVASTATIN
     Indication: Blood cholesterol increased
     Dosage: FREQUENCY : AT BEDTIME;?
     Route: 048
     Dates: start: 20221229, end: 20230107
  2. PREMARIN VAGINAL [Concomitant]
     Active Substance: ESTROGENS, CONJUGATED
  3. VITAMIN D NOS [Concomitant]
     Active Substance: VITAMIN D NOS

REACTIONS (11)
  - Pain [None]
  - Muscle spasms [None]
  - Pain in extremity [None]
  - Muscle spasms [None]
  - Abdominal pain upper [None]
  - Abdominal pain [None]
  - Muscle spasms [None]
  - Neck pain [None]
  - Chest pain [None]
  - Myocardial infarction [None]
  - Drug ineffective [None]

NARRATIVE: CASE EVENT DATE: 20230107
